FAERS Safety Report 6415089-8 (Version None)
Quarter: 2009Q4

REPORT INFORMATION
  Report Type: 
  Country: None (occurrence: None)
  Receive Date: 20091022
  Receipt Date: 20091007
  Transmission Date: 20100525
  Serious: Yes (Hospitalization)
  Sender: FDA-Public Use
  Company Number: 2009-1177

PATIENT
  Sex: Female

DRUGS (1)
  1. (LENREOTIDE ACETATE) [Suspect]
     Indication: LYMPHORRHOEA
     Dosage: (90 MG,ONCE) SUBCUTANEOUS
     Route: 058
     Dates: start: 20080727, end: 20080727

REACTIONS (6)
  - BREECH PRESENTATION [None]
  - CAESAREAN SECTION [None]
  - FOETAL HEART RATE DECREASED [None]
  - HAEMANGIOMA CONGENITAL [None]
  - PREMATURE BABY [None]
  - WEIGHT DECREASE NEONATAL [None]
